FAERS Safety Report 9778403 (Version 1)
Quarter: 2013Q4

REPORT INFORMATION
  Report Type: Not Available
  Country: IT (occurrence: IT)
  Receive Date: 20131223
  Receipt Date: 20131223
  Transmission Date: 20140711
  Serious: Yes (Other)
  Sender: FDA-Public Use
  Company Number: IT-NAPPMUNDI-GBR-2013-0016702

PATIENT
  Age: 70 Year
  Sex: Female
  Weight: 62 kg

DRUGS (5)
  1. OXYCONTIN 40 MG COMPRESSE A RILASCIO PROLUNGATO [Suspect]
     Indication: PAIN
     Dosage: 80 MG, DAILY
     Route: 048
     Dates: start: 20131001, end: 20131106
  2. ACTIQ [Suspect]
     Indication: PAIN
     Dosage: 400 MCG, PRN
     Route: 060
     Dates: start: 20130924, end: 20131106
  3. ALMARYTM [Concomitant]
     Indication: ARRHYTHMIA
     Dosage: 100 MG, UNK
     Route: 048
  4. PARIET [Concomitant]
     Indication: PROPHYLAXIS AGAINST GASTROINTESTINAL ULCER
     Dosage: 40 MG, UNK
     Route: 048
     Dates: start: 20130809, end: 20131106
  5. SOLDESAM [Concomitant]
     Indication: PAIN
     Dosage: 64 DROP, UNK
     Route: 048
     Dates: start: 20130731, end: 20131106

REACTIONS (2)
  - Bradykinesia [Recovered/Resolved]
  - Bradyphrenia [Recovered/Resolved]
